FAERS Safety Report 4391284-7 (Version None)
Quarter: 2004Q2

REPORT INFORMATION
  Report Type: 
  Country: None (occurrence: None)
  Receive Date: 20040621
  Receipt Date: 20031105
  Transmission Date: 20050107
  Serious: Yes (Other)
  Sender: FDA-Public Use
  Company Number: USA-2003-0006219

PATIENT
  Age: 26 Year
  Sex: Female

DRUGS (2)
  1. OXYCONTIN [Suspect]
     Dosage: 20 MG, DAILY, ORAL
     Route: 048
  2. XANAX [Concomitant]

REACTIONS (16)
  - CLAUSTROPHOBIA [None]
  - DEPRESSION [None]
  - DRUG DEPENDENCE [None]
  - DRUG WITHDRAWAL SYNDROME [None]
  - DYSPHORIA [None]
  - EMOTIONAL DISTRESS [None]
  - FEELING ABNORMAL [None]
  - HEADACHE [None]
  - ILL-DEFINED DISORDER [None]
  - INSOMNIA [None]
  - INTERVERTEBRAL DISC PROTRUSION [None]
  - IRRITABILITY [None]
  - MEDICATION ERROR [None]
  - NAUSEA [None]
  - PAIN [None]
  - RECTAL HAEMORRHAGE [None]
